FAERS Safety Report 4312571-4 (Version None)
Quarter: 2004Q1

REPORT INFORMATION
  Report Type: 
  Country: None (occurrence: None)
  Receive Date: 20040303
  Receipt Date: 20040223
  Transmission Date: 20041129
  Serious: Yes (Hospitalization)
  Sender: FDA-Public Use
  Company Number: US-JNJFOC-20040205154

PATIENT
  Age: 69 Year
  Sex: Female

DRUGS (19)
  1. INFLIXIMAB (INFLIXIMAB, RECOMBINANT) LYOPHILIZED POWDER [Suspect]
     Indication: RHEUMATOID ARTHRITIS
     Dosage: INTRAVENOUS
     Route: 042
     Dates: start: 20010505, end: 20010505
  2. ADVIL [Concomitant]
  3. TUMS (CALCIUM CARBONATE) [Concomitant]
  4. BEXTRA [Concomitant]
  5. DARVOCET (PROPACET) [Concomitant]
  6. PREDNISONE [Concomitant]
  7. METHOTREXATE [Concomitant]
  8. FOLIC ACID [Concomitant]
  9. SLOBID (THEOPHYLLINE) TABLETS [Concomitant]
  10. POTASSIUM (POTASSIUM) [Concomitant]
  11. ZYRTEC [Concomitant]
  12. PREMARIN [Concomitant]
  13. THYROID TAB [Concomitant]
  14. FUROSEMIDE [Concomitant]
  15. FLONASE [Concomitant]
  16. ASMACORT (TRIAMCINOLONE ACETONIDE) [Concomitant]
  17. SEREVENT [Concomitant]
  18. ALBUTEROL [Concomitant]
  19. CALCIUM (CALCIUM) [Concomitant]

REACTIONS (7)
  - COLITIS [None]
  - DIVERTICULITIS [None]
  - NEPHROLITHIASIS [None]
  - PANCREATIC ATROPHY [None]
  - PANCREATITIS [None]
  - TOOTH ABSCESS [None]
  - VASCULAR STENOSIS [None]
